FAERS Safety Report 10392259 (Version 1)
Quarter: 2014Q3

REPORT INFORMATION
  Report Type: Report from Study
  Country: US (occurrence: US)
  Receive Date: 20140819
  Receipt Date: 20140819
  Transmission Date: 20150326
  Serious: Yes (Other)
  Sender: FDA-Public Use
  Company Number: US-ACCORD-025374

PATIENT
  Age: 39 Year
  Sex: Male

DRUGS (1)
  1. MITOMYCIN. [Suspect]
     Active Substance: MITOMYCIN
     Indication: SURGERY
     Route: 061

REACTIONS (5)
  - Off label use [Unknown]
  - Conjunctival erosion [Recovered/Resolved]
  - Scleritis [Recovering/Resolving]
  - Uveitis [Unknown]
  - Scleral thinning [Recovered/Resolved]
